FAERS Safety Report 21796678 (Version 1)
Quarter: 2022Q4

REPORT INFORMATION
  Report Type: Spontaneous
  Country: AT (occurrence: AT)
  Receive Date: 20221229
  Receipt Date: 20221229
  Transmission Date: 20230112
  Serious: Yes (Hospitalization)
  Sender: FDA-Public Use
  Company Number: None

PATIENT
  Age: 26 Year
  Sex: Male

DRUGS (13)
  1. ARIPIPRAZOLE [Suspect]
     Active Substance: ARIPIPRAZOLE
     Indication: Product used for unknown indication
     Dosage: 10 MG
     Route: 065
     Dates: start: 20220521, end: 20220523
  2. ARIPIPRAZOLE [Suspect]
     Active Substance: ARIPIPRAZOLE
     Dosage: 15 MG
     Route: 065
     Dates: start: 20220520, end: 20220520
  3. ARIPIPRAZOLE [Suspect]
     Active Substance: ARIPIPRAZOLE
     Dosage: 5 MG
     Route: 065
     Dates: start: 20220524, end: 20220524
  4. ZOLPIDEM [Suspect]
     Active Substance: ZOLPIDEM TARTRATE
     Indication: Product used for unknown indication
     Dosage: 10MG
     Route: 065
     Dates: start: 20220510, end: 20220609
  5. ZOLPIDEM [Suspect]
     Active Substance: ZOLPIDEM TARTRATE
     Dosage: 10 MG
     Route: 065
     Dates: start: 20220919, end: 20220919
  6. CARIPRAZINE [Suspect]
     Active Substance: CARIPRAZINE
     Indication: Product used for unknown indication
     Dosage: 4.5 MG
     Route: 065
     Dates: start: 20220826
  7. DOXYCYCLINE [Suspect]
     Active Substance: DOXYCYCLINE
     Indication: Product used for unknown indication
     Dosage: 200MG
     Route: 065
     Dates: start: 20220903, end: 20220923
  8. CLOZAPINE [Suspect]
     Active Substance: CLOZAPINE
     Indication: Product used for unknown indication
     Dosage: 25 MG
     Route: 065
     Dates: start: 20220615, end: 20220703
  9. CLOZAPINE [Suspect]
     Active Substance: CLOZAPINE
     Dosage: 100 MG
     Route: 065
     Dates: start: 20220704, end: 20220710
  10. CLOZAPINE [Suspect]
     Active Substance: CLOZAPINE
     Dosage: 200 MG
     Route: 065
     Dates: start: 20220711, end: 20220715
  11. CLOZAPINE [Suspect]
     Active Substance: CLOZAPINE
     Dosage: 100 MG
     Route: 065
     Dates: start: 20220719, end: 20220810
  12. CLOZAPINE [Suspect]
     Active Substance: CLOZAPINE
     Dosage: 250 MG
     Route: 065
     Dates: start: 20220811, end: 20220912
  13. CLOZAPINE [Suspect]
     Active Substance: CLOZAPINE
     Dosage: 200 MG
     Route: 065
     Dates: start: 20220913

REACTIONS (1)
  - Delirium [Recovered/Resolved]

NARRATIVE: CASE EVENT DATE: 20220920
